FAERS Safety Report 8471869-9 (Version None)
Quarter: 2012Q2

REPORT INFORMATION
  Report Type: 
  Country: None (occurrence: None)
  Receive Date: 20120627
  Receipt Date: 20120619
  Transmission Date: 20120825
  Serious: Yes (Hospitalization)
  Sender: FDA-Public Use
  Company Number: US-BAYER-2011-081842

PATIENT
  Age: 20 Year
  Sex: Female
  Weight: 56.689 kg

DRUGS (8)
  1. ONDANSETRON HYDROCHLORIDE [Concomitant]
     Dosage: 4 MG, UNK
  2. SUPRAX [Concomitant]
     Dosage: 400 MG, UNK
  3. AZITHROMYCIN [Concomitant]
     Dosage: 250 MG, UNK
  4. DROSPIRENONE AND ETHINYL ESTRADIOL [Suspect]
     Dosage: UNK
     Dates: start: 20080801, end: 20090401
  5. PRILOSEC [Concomitant]
     Dosage: UNK, UNK, DAILY
     Dates: start: 20100729
  6. ANTIEMETICS AND ANTINAUSEANTS [Concomitant]
     Indication: NAUSEA
     Dosage: UNK
     Dates: start: 20080101, end: 20100820
  7. YASMIN [Suspect]
     Dosage: UNK
     Dates: start: 20060101, end: 20080801
  8. PROMETHAZINE [Concomitant]
     Dosage: 25 MG, UNK

REACTIONS (8)
  - ANXIETY [None]
  - ANHEDONIA [None]
  - BILIARY DYSKINESIA [None]
  - ABDOMINAL PAIN [None]
  - FATIGUE [None]
  - PAIN [None]
  - NAUSEA [None]
  - GALLBLADDER DISORDER [None]
